FAERS Safety Report 10873749 (Version 1)
Quarter: 2015Q1

REPORT INFORMATION
  Report Type: Spontaneous
  Country: GB (occurrence: None)
  Receive Date: 20150224
  Receipt Date: 20150224
  Transmission Date: 20150721
  Serious: Yes (Life-Threatening)
  Sender: FDA-Public Use
  Company Number: 2015-000286

PATIENT
  Sex: Male

DRUGS (1)
  1. ASACOL [Suspect]
     Active Substance: MESALAMINE
     Route: 048

REACTIONS (1)
  - Bone marrow failure [None]
